FAERS Safety Report 4673118-6 (Version None)
Quarter: 2005Q2

REPORT INFORMATION
  Report Type: 
  Country: None (occurrence: None)
  Receive Date: 20050525
  Receipt Date: 20050513
  Transmission Date: 20051028
  Serious: Yes (Other)
  Sender: FDA-Public Use
  Company Number: CA-JNJFOC-20050504120

PATIENT
  Age: 48 Year
  Sex: Female

DRUGS (6)
  1. DURAGESIC-100 [Suspect]
     Route: 062
     Dates: start: 20040501
  2. DURAGESIC-100 [Suspect]
     Route: 062
     Dates: start: 20040501
  3. DURAGESIC-100 [Suspect]
     Route: 062
     Dates: start: 20040501
  4. DURAGESIC-100 [Suspect]
     Route: 062
     Dates: start: 20040501
  5. DURAGESIC-100 [Suspect]
     Route: 062
     Dates: start: 20040501
  6. DURAGESIC-100 [Suspect]
     Route: 062
     Dates: start: 20040501

REACTIONS (7)
  - APPLICATION SITE DERMATITIS [None]
  - APPLICATION SITE ERYTHEMA [None]
  - APPLICATION SITE IRRITATION [None]
  - APPLICATION SITE PRURITUS [None]
  - APPLICATION SITE ULCER [None]
  - DEPRESSION [None]
  - SUICIDAL IDEATION [None]
